FAERS Safety Report 7248974-8 (Version None)
Quarter: 2011Q1

REPORT INFORMATION
  Report Type: 
  Country: None (occurrence: None)
  Receive Date: 20110128
  Receipt Date: 20110120
  Transmission Date: 20110831
  Serious: Yes (Hospitalization)
  Sender: FDA-Public Use
  Company Number: FR-BRISTOL-MYERS SQUIBB COMPANY-15503386

PATIENT
  Age: 64 Year
  Sex: Female

DRUGS (10)
  1. SODIUM POLYSTYRENE SULFONATE [Suspect]
     Route: 048
  2. ZOLPIDEM [Suspect]
     Route: 048
  3. OROCAL [Suspect]
     Route: 048
  4. BROMAZEPAM [Concomitant]
  5. COUMADIN [Suspect]
  6. MIMPARA [Suspect]
     Route: 048
  7. PHENOXYMETHYLPENICILLIN [Concomitant]
  8. VENOFER [Concomitant]
  9. CANDESARTAN CILEXETIL [Suspect]
     Route: 048
  10. OMEPRAZOLE [Concomitant]

REACTIONS (2)
  - INTRAVASCULAR HAEMOLYSIS [None]
  - HYPERTENSION [None]
